FAERS Safety Report 5983473-2 (Version None)
Quarter: 2008Q4

REPORT INFORMATION
  Report Type: 
  Country: None (occurrence: None)
  Receive Date: 20081208
  Receipt Date: 20080306
  Transmission Date: 20090506
  Serious: No
  Sender: FDA-Public Use
  Company Number: US-AMGEN-KDL268456

PATIENT
  Sex: Female
  Weight: 74.9 kg

DRUGS (5)
  1. ENBREL [Suspect]
     Indication: RHEUMATOID ARTHRITIS
  2. HUMIRA [Concomitant]
     Route: 058
     Dates: start: 20060101, end: 20080124
  3. ADVIL LIQUI-GELS [Concomitant]
  4. TYLENOL (CAPLET) [Concomitant]
  5. PLAQUENIL [Concomitant]

REACTIONS (3)
  - JOINT SWELLING [None]
  - PRURITUS [None]
  - RASH [None]
